FAERS Safety Report 9535116 (Version 2)
Quarter: 2013Q4

REPORT INFORMATION
  Report Type: Report from Study
  Country: GB (occurrence: GB)
  Receive Date: 20130918
  Receipt Date: 20131023
  Transmission Date: 20140711
  Serious: Yes (Hospitalization, Other)
  Sender: FDA-Public Use
  Company Number: GB-ROCHE-1276994

PATIENT
  Age: 78 Year
  Sex: Male

DRUGS (2)
  1. RANIBIZUMAB [Suspect]
     Indication: AGE-RELATED MACULAR DEGENERATION
     Route: 050
     Dates: start: 20120619
  2. RANIBIZUMAB [Suspect]
     Route: 050
     Dates: start: 20121016

REACTIONS (2)
  - Vitreous haemorrhage [Recovered/Resolved]
  - Age-related macular degeneration [Not Recovered/Not Resolved]
